FAERS Safety Report 5872814-2 (Version None)
Quarter: 2008Q3

REPORT INFORMATION
  Report Type: 
  Country: None (occurrence: None)
  Receive Date: 20080905
  Receipt Date: 20080828
  Transmission Date: 20090109
  Serious: Yes (Hospitalization)
  Sender: FDA-Public Use
  Company Number: TR-ABBOTT-08P-028-0470688-00

PATIENT
  Age: 35 Year
  Sex: Female

DRUGS (1)
  1. LEUPROLIDE ACETATE [Suspect]
     Indication: ENDOMETRIOSIS

REACTIONS (2)
  - DEEP VEIN THROMBOSIS [None]
  - INTRACARDIAC THROMBUS [None]
